FAERS Safety Report 15548837 (Version 1)
Quarter: 2018Q4

REPORT INFORMATION
  Report Type: Spontaneous
  Country: AT (occurrence: AT)
  Receive Date: 20181025
  Receipt Date: 20181025
  Transmission Date: 20190205
  Serious: Yes (Other)
  Sender: FDA-Public Use
  Company Number: AT-SHILPA MEDICARE LIMITED-SML-AT-2018-00099

PATIENT
  Age: 16 Year
  Sex: Male

DRUGS (4)
  1. IMATINIB, UNKNOWN [Suspect]
     Active Substance: IMATINIB
     Indication: MYELODYSPLASTIC SYNDROME
     Route: 065
  2. AZACITIDINE, UNKNOWN [Suspect]
     Active Substance: AZACITIDINE
     Indication: MYELODYSPLASTIC SYNDROME
  3. AZACITIDINE, UNKNOWN [Suspect]
     Active Substance: AZACITIDINE
     Indication: ACUTE MYELOID LEUKAEMIA
     Route: 065
  4. IMATINIB, UNKNOWN [Suspect]
     Active Substance: IMATINIB
     Indication: ACUTE MYELOID LEUKAEMIA
     Route: 065

REACTIONS (2)
  - Product use in unapproved indication [Unknown]
  - Enterovirus infection [Recovered/Resolved]
